FAERS Safety Report 7188865-4 (Version None)
Quarter: 2010Q4

REPORT INFORMATION
  Report Type: 
  Country: None (occurrence: None)
  Receive Date: 20101222
  Receipt Date: 20100728
  Transmission Date: 20110411
  Serious: No
  Sender: FDA-Public Use
  Company Number: US-AMGEN-KDL427757

PATIENT

DRUGS (10)
  1. ENBREL [Suspect]
     Indication: PRODUCT USED FOR UNKNOWN INDICATION
     Dosage: 50 MG, QWK
     Route: 058
  2. DULOXETIME HYDROCHLORIDE [Concomitant]
     Dosage: 60 MG, UNK
  3. METHOTREXATE [Concomitant]
     Dosage: 2.5 MG, UNK
  4. NORTRIPTYLINE [Concomitant]
     Dosage: 10 MG, UNK
  5. LISINOPRIL [Concomitant]
     Dosage: 30 MG, UNK
  6. TYLENOL PM [Concomitant]
     Dosage: UNK UNK, UNK
  7. SIMVASTATIN [Concomitant]
     Dosage: 80 MG, UNK
  8. FEXOFENADINE HCL [Concomitant]
     Dosage: 30 MG, UNK
  9. ASPIRIN [Concomitant]
     Dosage: 325 MG, UNK
  10. IBUPROFEN [Concomitant]
     Dosage: 200 MG, UNK

REACTIONS (2)
  - COUGH [None]
  - RESPIRATORY TRACT CONGESTION [None]
